FAERS Safety Report 5354604-2 (Version None)
Quarter: 2007Q2

REPORT INFORMATION
  Report Type: 
  Country: None (occurrence: None)
  Receive Date: 20070608
  Receipt Date: 20070601
  Transmission Date: 20071010
  Serious: Yes (Hospitalization)
  Sender: FDA-Public Use
  Company Number: 2007BI007984

PATIENT
  Age: 37 Year
  Sex: Female
  Weight: 58.9676 kg

DRUGS (1)
  1. AVONEX [Suspect]
     Indication: MULTIPLE SCLEROSIS
     Dosage: 30 UG;QW;IM
     Route: 030
     Dates: start: 19980501

REACTIONS (7)
  - FEMUR FRACTURE [None]
  - HAEMORRHAGE [None]
  - HEMIPARESIS [None]
  - HYSTERECTOMY [None]
  - JOINT SWELLING [None]
  - OSTEOPOROSIS [None]
  - PAIN [None]
